FAERS Safety Report 10018356 (Version 4)
Quarter: 2014Q3

REPORT INFORMATION
  Report Type: Spontaneous
  Country: IT (occurrence: IT)
  Receive Date: 20140318
  Receipt Date: 20140912
  Transmission Date: 20150326
  Serious: Yes (Other)
  Sender: FDA-Public Use
  Company Number: IT-ABBVIE-14P-083-1213411-00

PATIENT
  Age: 46 Year
  Sex: Male

DRUGS (6)
  1. AUGMENTIN [Suspect]
     Active Substance: AMOXICILLIN\CLAVULANATE POTASSIUM
     Indication: TOOTH INFECTION
     Dosage: FORM STRENGTH: 875MG/125MG (DAILY DOSE: 2 UNIT)
     Route: 048
     Dates: start: 20140110, end: 20140112
  2. CLARITHROMYCIN. [Suspect]
     Active Substance: CLARITHROMYCIN
     Indication: TOOTH INFECTION
     Route: 048
     Dates: start: 20140112, end: 20140112
  3. AUGMENTIN [Suspect]
     Active Substance: AMOXICILLIN\CLAVULANATE POTASSIUM
     Dates: start: 20140112, end: 20140113
  4. PARACETAMOLO [Concomitant]
     Active Substance: ACETAMINOPHEN
     Indication: TOOTHACHE
     Route: 048
     Dates: start: 20140110, end: 20140113
  5. OKI [Suspect]
     Active Substance: KETOPROFEN LYSINE
  6. OKI [Suspect]
     Active Substance: KETOPROFEN LYSINE
     Indication: TOOTHACHE
     Route: 048
     Dates: start: 20140110, end: 20140113

REACTIONS (5)
  - Headache [Recovered/Resolved]
  - Drug abuse [Recovered/Resolved]
  - Nausea [Recovered/Resolved]
  - Vomiting [Recovered/Resolved]
  - Periorbital oedema [Recovered/Resolved]

NARRATIVE: CASE EVENT DATE: 20140112
